FAERS Safety Report 9026123 (Version 1)
Quarter: 2013Q1

REPORT INFORMATION
  Report Type: Spontaneous
  Country: US (occurrence: None)
  Receive Date: 20130108
  Receipt Date: 20130108
  Transmission Date: 20140127
  Serious: Yes (Other)
  Sender: FDA-Public Use
  Company Number: 2012P1068343

PATIENT
  Sex: Female

DRUGS (3)
  1. INFUMORPH [Suspect]
     Indication: POST LAMINECTOMY SYNDROME
     Dates: start: 2012, end: 2012
  2. INFUMORPH [Suspect]
     Indication: SPINAL PAIN
     Dates: start: 2012, end: 2012
  3. CLONIDINE [Suspect]
     Indication: POST LAMINECTOMY SYNDROME
     Dates: start: 2012, end: 2012

REACTIONS (2)
  - Device dislocation [None]
  - Therapeutic product ineffective [None]
